FAERS Safety Report 10581210 (Version 1)
Quarter: 2014Q4

REPORT INFORMATION
  Report Type: Spontaneous
  Country: JP (occurrence: None)
  Receive Date: 20141110
  Receipt Date: 20141110
  Transmission Date: 20150529
  Serious: Yes (Hospitalization)
  Sender: FDA-Public Use
  Company Number: 2014JP000619

PATIENT
  Age: 65 Year
  Sex: Male

DRUGS (1)
  1. RIONA (FERRIC CITRATE) FILM-COATED TABLET [Suspect]
     Active Substance: FERRIC CITRATE ANHYDROUS
     Route: 048
     Dates: end: 201409

REACTIONS (1)
  - Gastrointestinal inflammation [None]

NARRATIVE: CASE EVENT DATE: 201410
